APPROVED DRUG PRODUCT: BEPOTASTINE BESILATE
Active Ingredient: BEPOTASTINE BESILATE
Strength: 1.5%
Dosage Form/Route: SOLUTION/DROPS;OPHTHALMIC
Application: A214588 | Product #001 | TE Code: AT
Applicant: ALEMBIC PHARMACEUTICALS LTD
Approved: Apr 5, 2023 | RLD: No | RS: No | Type: RX